FAERS Safety Report 7477804-4 (Version None)
Quarter: 2011Q2

REPORT INFORMATION
  Report Type: 
  Country: None (occurrence: None)
  Receive Date: 20110511
  Receipt Date: 20110511
  Transmission Date: 20111010
  Serious: Yes (Other)
  Sender: FDA-Public Use
  Company Number: None

PATIENT
  Age: 63 Year
  Sex: Male

DRUGS (8)
  1. REVLIMID [Suspect]
     Indication: MULTIPLE MYELOMA
     Dosage: REVLIMID 25 MG DAILY X21D/28D ORALLY
     Route: 048
     Dates: start: 20110101
  2. METHYLIN [Concomitant]
  3. ACYCLOVIR [Concomitant]
  4. DEXAMETHASONE [Concomitant]
  5. LEVOTHROID [Concomitant]
  6. OMEPRAZOLE [Concomitant]
  7. PROAIR HFA [Concomitant]
  8. SIMVASTATIN [Concomitant]

REACTIONS (1)
  - NEUROPATHY PERIPHERAL [None]
